FAERS Safety Report 4565547-6 (Version None)
Quarter: 2005Q1

REPORT INFORMATION
  Report Type: 
  Country: None (occurrence: None)
  Receive Date: 20050126
  Receipt Date: 20050111
  Transmission Date: 20050727
  Serious: Yes (Other)
  Sender: FDA-Public Use
  Company Number: USA050188038

PATIENT
  Age: 70 Year
  Sex: Female

DRUGS (3)
  1. STRATTERA [Suspect]
     Indication: DISTURBANCE IN ATTENTION
     Dosage: 60 MG DAY
  2. EFFEXOR [Concomitant]
  3. DIFLUCAN [Concomitant]

REACTIONS (1)
  - MALIGNANT HYPERTENSION [None]
